FAERS Safety Report 9414038 (Version 5)
Quarter: 2013Q4

REPORT INFORMATION
  Report Type: Spontaneous
  Country: JP (occurrence: JP)
  Receive Date: 20130723
  Receipt Date: 20131206
  Transmission Date: 20140711
  Serious: Yes (Other)
  Sender: FDA-Public Use
  Company Number: JP-ROCHE-1250380

PATIENT
  Age: 60 Year
  Sex: Male
  Weight: 61 kg

DRUGS (3)
  1. LUCENTIS [Suspect]
     Indication: AGE-RELATED MACULAR DEGENERATION
     Dosage: ON RIGHT EYE
     Route: 050
     Dates: start: 20120404
  2. LUCENTIS [Suspect]
     Route: 050
     Dates: start: 20120501
  3. LUCENTIS [Suspect]
     Route: 050
     Dates: start: 20120605, end: 20120605

REACTIONS (3)
  - Vitreous adhesions [Recovered/Resolved with Sequelae]
  - Inappropriate schedule of drug administration [Unknown]
  - Visual acuity reduced [Not Recovered/Not Resolved]
